FAERS Safety Report 19165823 (Version 2)
Quarter: 2021Q2

REPORT INFORMATION
  Report Type: Other
  Country: NL (occurrence: NL)
  Receive Date: 20210422
  Receipt Date: 20210622
  Transmission Date: 20210717
  Serious: Yes (Other)
  Sender: FDA-Public Use
  Company Number: NL-ROCHE-2813519

PATIENT
  Age: 59 Year
  Sex: Male

DRUGS (16)
  1. RITUXIMAB. [Suspect]
     Active Substance: RITUXIMAB
     Indication: FOLLICULAR LYMPHOMA
  2. CYCLOPHOSPHAMIDE. [Suspect]
     Active Substance: CYCLOPHOSPHAMIDE
     Indication: LYMPHADENOPATHY MEDIASTINAL
  3. VINCRISTINE [Suspect]
     Active Substance: VINCRISTINE
     Indication: LYMPHADENOPATHY MEDIASTINAL
  4. PREDNISONE. [Suspect]
     Active Substance: PREDNISONE
     Indication: LYMPHADENOPATHY MEDIASTINAL
     Dosage: 40 MG/M2, CYCLIC (8 CYCLES (DAY 1?5))
     Route: 048
  5. PREDNISONE. [Suspect]
     Active Substance: PREDNISONE
     Indication: LYMPHADENOPATHY
  6. RITUXIMAB. [Suspect]
     Active Substance: RITUXIMAB
     Indication: ABDOMINAL LYMPHADENOPATHY
  7. CYCLOPHOSPHAMIDE. [Suspect]
     Active Substance: CYCLOPHOSPHAMIDE
     Indication: FOLLICULAR LYMPHOMA
     Dosage: 750 MG/M2, CYCLIC  (8 CYCLES (DAY 1))
     Route: 042
  8. VINCRISTINE [Suspect]
     Active Substance: VINCRISTINE
     Indication: LYMPHADENOPATHY
  9. RITUXIMAB. [Suspect]
     Active Substance: RITUXIMAB
     Indication: LYMPHADENOPATHY
     Dosage: 375 MG/M2, CYCLIC (8 CYCLES (DAY 1))
     Route: 042
  10. RITUXIMAB. [Suspect]
     Active Substance: RITUXIMAB
     Indication: LYMPHADENOPATHY MEDIASTINAL
  11. VINCRISTINE [Suspect]
     Active Substance: VINCRISTINE
     Indication: ABDOMINAL LYMPHADENOPATHY
     Dosage: 1.4 MG/M2, CYCLIC (8 CYCLES (DAY 1))
     Route: 042
  12. PREDNISONE. [Suspect]
     Active Substance: PREDNISONE
     Indication: ABDOMINAL LYMPHADENOPATHY
  13. CYCLOPHOSPHAMIDE. [Suspect]
     Active Substance: CYCLOPHOSPHAMIDE
     Indication: ABDOMINAL LYMPHADENOPATHY
  14. CYCLOPHOSPHAMIDE. [Suspect]
     Active Substance: CYCLOPHOSPHAMIDE
     Indication: LYMPHADENOPATHY
  15. PREDNISONE. [Suspect]
     Active Substance: PREDNISONE
     Indication: FOLLICULAR LYMPHOMA
  16. VINCRISTINE [Suspect]
     Active Substance: VINCRISTINE
     Indication: FOLLICULAR LYMPHOMA

REACTIONS (3)
  - Lymphadenopathy [Unknown]
  - Therapy partial responder [Unknown]
  - Follicular lymphoma [Unknown]

NARRATIVE: CASE EVENT DATE: 2013
